FAERS Safety Report 23415409 (Version 1)
Quarter: 2024Q1

REPORT INFORMATION
  Report Type: Spontaneous
  Country: GB (occurrence: GB)
  Receive Date: 20240118
  Receipt Date: 20240118
  Transmission Date: 20240410
  Serious: Yes (Other)
  Sender: FDA-Public Use
  Company Number: None

PATIENT
  Age: 81 Year

DRUGS (11)
  1. FINASTERIDE [Suspect]
     Active Substance: FINASTERIDE
     Indication: Product used for unknown indication
     Dosage: 5MG DAILY; ;
     Route: 065
     Dates: start: 20231018, end: 20231106
  2. TAMSULOSIN [Concomitant]
     Active Substance: TAMSULOSIN
  3. DABIGATRAN [Concomitant]
     Active Substance: DABIGATRAN
  4. DERMOL [Concomitant]
     Active Substance: BENZALKONIUM CHLORIDE\CHLORHEXIDINE HYDROCHLORIDE\ISOPROPYL MYRISTATE\PARAFFIN
  5. BISOPROLOL [Concomitant]
     Active Substance: BISOPROLOL\BISOPROLOL FUMARATE
  6. LISINOPRIL [Concomitant]
     Active Substance: LISINOPRIL
  7. PREGABALIN [Concomitant]
     Active Substance: PREGABALIN
  8. CARBOCYSTEINE [Concomitant]
     Active Substance: CARBOCYSTEINE
  9. MOMETASONE [Concomitant]
     Active Substance: MOMETASONE
  10. LEVOFLOXACIN [Concomitant]
     Active Substance: LEVOFLOXACIN
  11. LANSOPRAZOLE [Concomitant]
     Active Substance: LANSOPRAZOLE

REACTIONS (4)
  - Testicular pain [Recovered/Resolved]
  - Urine flow decreased [Recovered/Resolved]
  - Dysuria [Recovered/Resolved]
  - Prostate tenderness [Recovered/Resolved]

NARRATIVE: CASE EVENT DATE: 20231023
